FAERS Safety Report 9227866 (Version 2)
Quarter: 2013Q2

REPORT INFORMATION
  Report Type: Spontaneous
  Country: US (occurrence: None)
  Receive Date: 20130410
  Receipt Date: 20130506
  Transmission Date: 20140414
  Serious: Yes (Other)
  Sender: FDA-Public Use
  Company Number: NL-20130004

PATIENT
  Age: 76 Year
  Sex: 0

DRUGS (15)
  1. HEXABRIX [Suspect]
     Indication: ARTERIOGRAM CORONARY
     Route: 013
     Dates: start: 20130322, end: 20130322
  2. HEPARINE (HEPARINE) (HEPARINE) [Concomitant]
  3. FOLIUMACID (FOLIC ACID) (FOLIC ACID) [Concomitant]
  4. DIOVAN (VALSARTAN) (VALSARTAN, 12HX015E [Concomitant]
  5. METFORMINE (METFORMINE) (METFORMINE) [Concomitant]
  6. PREDNISON (PREDNISONE) (PREDNISONE) [Concomitant]
  7. METHOTREXATE (METHOTREXATE) (METHOTREXATE) [Concomitant]
  8. SIMVASTATINE (SIMVASTATINE) (SIMVASTATINE) [Concomitant]
  9. PANTOZOLE (PANTOPRAZOLE SODIUM SESQUIHYDRATE) (PANTOPRAZOLE SODIUM SESQUIHYDRATE) [Concomitant]
  10. PLAVIS (CLOPIDOGREL) (CLOPIDOGREL) [Concomitant]
  11. CALCICHEW (CARBONATE CALCIUM) (500 MILLIGRAM) (CARBONATE CALCIUM) [Concomitant]
  12. METOPROLOL (METOPROLOL) (METOPROLOL) [Concomitant]
  13. NITROFURANTOIN MCR [Concomitant]
  14. ACETOSAL (ACETYLSALICYLIC ACID) (ACETYLSALICYLIC ACID) [Concomitant]
  15. LIDOCAINE (LIDOCAINE) (2 PERCENT) (LIDOCAINE) [Concomitant]

REACTIONS (8)
  - Leukopenia [None]
  - Cough [None]
  - Chills [None]
  - Hyperglycaemia [None]
  - Shock [None]
  - Hypertension [None]
  - Diabetes mellitus [None]
  - Product quality issue [None]
